FAERS Safety Report 4451616-8 (Version None)
Quarter: 2004Q3

REPORT INFORMATION
  Report Type: 
  Country: None (occurrence: None)
  Receive Date: 20040915
  Receipt Date: 20040901
  Transmission Date: 20050211
  Serious: Yes (Hospitalization)
  Sender: FDA-Public Use
  Company Number: 04P-008-0256269-01

PATIENT
  Age: 39 Year
  Sex: Male

DRUGS (9)
  1. NORVIR [Suspect]
     Indication: HIV INFECTION
     Dosage: 100 MG, 2 IN 1 D, PER ORAL
     Route: 048
     Dates: start: 20040318
  2. ENFUVIRTIDE [Concomitant]
  3. ATAZANAVIR [Concomitant]
  4. TENOFOVIR [Concomitant]
  5. ACYCLOVIR [Concomitant]
  6. BACTRIM [Concomitant]
  7. CLARITHROMYCIN [Concomitant]
  8. TMC114 [Concomitant]
  9. PREDNISONE [Concomitant]

REACTIONS (9)
  - BACTERIA URINE IDENTIFIED [None]
  - DEHYDRATION [None]
  - DIARRHOEA [None]
  - HYPOTENSION [None]
  - IMMUNE RECONSTITUTION SYNDROME [None]
  - KLEBSIELLA INFECTION [None]
  - PYREXIA [None]
  - RENAL FAILURE ACUTE [None]
  - VITRITIS [None]
